FAERS Safety Report 8602998 (Version 2)
Quarter: 2012Q4

REPORT INFORMATION
  Report Type: 
  Country: GB (occurrence: GB)
  Receive Date: 20120607
  Receipt Date: 20120917
  Transmission Date: 20130627
  Serious: Yes (Hospitalization)
  Sender: FDA-Public Use
  Company Number: GB-TEVA-340217ISR

PATIENT
  Age: 83 Year
  Sex: Male

DRUGS (14)
  1. AMITRIPTYLINE [Suspect]
  2. KETOPROFEN [Suspect]
  3. ASPIRIN [Suspect]
  4. VERAPAMIL [Concomitant]
  5. FERROUS FUMARATE [Concomitant]
  6. SIMVASTATIN [Concomitant]
  7. RAMIPRIL [Concomitant]
  8. OMEPRAZOLE [Concomitant]
  9. GABAPENTIN [Concomitant]
  10. FLUDROCORTISONE [Concomitant]
  11. FUCIDIN [Concomitant]
  12. GLYCERYL TRINITRATE [Concomitant]
  13. HUMULIN [Concomitant]
  14. CO-CODAMOL [Concomitant]

REACTIONS (1)
  - Gastrointestinal haemorrhage [Unknown]
